FAERS Safety Report 19145319 (Version 1)
Quarter: 2021Q2

REPORT INFORMATION
  Report Type: Spontaneous
  Country: US (occurrence: US)
  Receive Date: 20210416
  Receipt Date: 20210416
  Transmission Date: 20210717
  Serious: Yes (Death)
  Sender: FDA-Public Use
  Company Number: US-PFIZER INC-2021392180

PATIENT
  Age: 10 Year
  Sex: Female

DRUGS (5)
  1. PROCARBAZINE [Suspect]
     Active Substance: PROCARBAZINE
     Indication: ANAPLASTIC OLIGODENDROGLIOMA
     Dosage: UNK
  2. VINCRISTINE SULFATE. [Suspect]
     Active Substance: VINCRISTINE SULFATE
     Indication: ANAPLASTIC OLIGODENDROGLIOMA
     Dosage: UNK
  3. RAPAMYCIN [Suspect]
     Active Substance: SIROLIMUS
     Indication: ANAPLASTIC OLIGODENDROGLIOMA
     Dosage: 0.8 MG/M2/DOSE
  4. LOMUSTIN [Suspect]
     Active Substance: LOMUSTINE
     Indication: ANAPLASTIC OLIGODENDROGLIOMA
     Dosage: UNK
  5. ERLOTINIB [Suspect]
     Active Substance: ERLOTINIB
     Indication: ANAPLASTIC OLIGODENDROGLIOMA
     Dosage: 65 MG/M2, 1X/DAY
     Route: 048

REACTIONS (2)
  - Neoplasm progression [Fatal]
  - Rash [Fatal]
